FAERS Safety Report 16727372 (Version 2)
Quarter: 2020Q1

REPORT INFORMATION
  Report Type: Spontaneous
  Country: US (occurrence: US)
  Receive Date: 20190822
  Receipt Date: 20200203
  Transmission Date: 20200409
  Serious: No
  Sender: FDA-Public Use
  Company Number: US-SA-2019SA228562

PATIENT
  Age: 68 Year
  Sex: Female

DRUGS (10)
  1. LORAZEPAM. [Concomitant]
     Active Substance: LORAZEPAM
  2. DUPIXENT [Suspect]
     Active Substance: DUPILUMAB
     Dosage: 300 MG, QOW
     Route: 058
     Dates: start: 20190130
  3. TIZANIDINE. [Concomitant]
     Active Substance: TIZANIDINE
  4. HYDROXYZINE [Concomitant]
     Active Substance: HYDROXYZINE HYDROCHLORIDE
  5. BUPROPION. [Concomitant]
     Active Substance: BUPROPION
  6. DULOXETINE. [Concomitant]
     Active Substance: DULOXETINE
  7. AMOXICILLIN. [Concomitant]
     Active Substance: AMOXICILLIN
  8. DICLOFENAC [Concomitant]
     Active Substance: DICLOFENAC
  9. PREDNISONE. [Concomitant]
     Active Substance: PREDNISONE
  10. ROSUVASTATIN. [Concomitant]
     Active Substance: ROSUVASTATIN

REACTIONS (3)
  - Product dose omission [Not Recovered/Not Resolved]
  - Pruritus [Not Recovered/Not Resolved]
  - Condition aggravated [Not Recovered/Not Resolved]

NARRATIVE: CASE EVENT DATE: 201907
